FAERS Safety Report 6443548-0 (Version None)
Quarter: 2009Q4

REPORT INFORMATION
  Report Type: 
  Country: None (occurrence: None)
  Receive Date: 20091117
  Receipt Date: 20091112
  Transmission Date: 20100525
  Serious: Yes (Death)
  Sender: FDA-Public Use
  Company Number: GB-ROCHE-580466

PATIENT
  Sex: Male
  Weight: 90.4 kg

DRUGS (6)
  1. CAPECITABINE [Suspect]
     Indication: COLORECTAL CANCER METASTATIC
     Dosage: FREQUENCY REPORTED AS 14 DAYS.
     Route: 048
     Dates: start: 20080421, end: 20080729
  2. BEVACIZUMAB [Suspect]
     Indication: COLORECTAL CANCER METASTATIC
     Route: 042
     Dates: start: 20080421, end: 20080729
  3. GTN SPRAY [Concomitant]
  4. SIMVASTATIN [Concomitant]
  5. AMLODIPINE [Concomitant]
  6. RANITIDINE [Concomitant]

REACTIONS (1)
  - MYOCARDIAL INFARCTION [None]
